FAERS Safety Report 4554894-X (Version None)
Quarter: 2004Q4

REPORT INFORMATION
  Report Type: 
  Country: None (occurrence: None)
  Receive Date: 20041222
  Receipt Date: 20041029
  Transmission Date: 20050328
  Serious: Yes (Life-Threatening, Hospitalization)
  Sender: FDA-Public Use
  Company Number: 208774

PATIENT
  Age: 82 Year
  Sex: Female

DRUGS (7)
  1. AVASTIN [Suspect]
     Indication: COLORECTAL CANCER METASTATIC
     Dosage: 370 MG, Q2W, INTRAVENOUS
     Route: 042
     Dates: start: 20040407
  2. CLONIDINE [Concomitant]
  3. HYDROCHLOROTHIAZIDE [Concomitant]
  4. ATENOLOL [Concomitant]
  5. PANTOPRAZOLE (PANTOPRAZOLE) [Concomitant]
  6. CLOPIDOGREL (CLOPIDOGREL BISULFATE) [Concomitant]
  7. LOVASTATIN [Concomitant]

REACTIONS (1)
  - MYOCARDIAL INFARCTION [None]
